FAERS Safety Report 20825660 (Version 1)
Quarter: 2022Q2

REPORT INFORMATION
  Report Type: Spontaneous
  Country: US (occurrence: US)
  Receive Date: 20220513
  Receipt Date: 20220513
  Transmission Date: 20220721
  Serious: No
  Sender: FDA-Public Use
  Company Number: US-EPICPHARMA-US-2022EPCSPO00267

PATIENT
  Sex: Male

DRUGS (1)
  1. CHOLESTYRAMINE [Suspect]
     Active Substance: CHOLESTYRAMINE
     Indication: Anal incontinence
     Route: 048

REACTIONS (9)
  - Feeling abnormal [Unknown]
  - Product taste abnormal [Unknown]
  - Dysgeusia [Unknown]
  - Product shape issue [Unknown]
  - Product substitution issue [Unknown]
  - Adverse reaction [Unknown]
  - Product use complaint [Unknown]
  - Product use in unapproved indication [Unknown]
  - Product dose omission issue [Unknown]

NARRATIVE: CASE EVENT DATE: 20220509
